FAERS Safety Report 25109285 (Version 1)
Quarter: 2025Q1

REPORT INFORMATION
  Report Type: Spontaneous
  Country: US (occurrence: US)
  Receive Date: 20250323
  Receipt Date: 20250323
  Transmission Date: 20250409
  Serious: Yes (Hospitalization)
  Sender: ROCHE
  Company Number: US-ROCHE-10000231987

PATIENT
  Age: 68 Year
  Sex: Female

DRUGS (1)
  1. ACTEMRA ACTPEN [Suspect]
     Active Substance: TOCILIZUMAB
     Indication: Giant cell arteritis
     Dosage: ABOUT EVERY 14 DAYS
     Route: 058
     Dates: end: 20250215

REACTIONS (7)
  - Infection [Recovered/Resolved]
  - Migraine [Unknown]
  - Brain fog [Unknown]
  - Weight increased [Unknown]
  - Gastrointestinal disorder [Unknown]
  - Aphasia [Unknown]
  - Staphylococcus test positive [Unknown]

NARRATIVE: CASE EVENT DATE: 20250215
